FAERS Safety Report 8274391-8 (Version None)
Quarter: 2012Q2

REPORT INFORMATION
  Report Type: 
  Country: None (occurrence: None)
  Receive Date: 20120411
  Receipt Date: 20120404
  Transmission Date: 20120825
  Serious: Yes (Hospitalization)
  Sender: FDA-Public Use
  Company Number: FR-US-EMD SERONO, INC.-7122475

PATIENT
  Sex: Female

DRUGS (3)
  1. CONTRACEPTIVE TREATMENT [Concomitant]
     Indication: CONTRACEPTION
     Route: 048
  2. REBIF [Suspect]
     Indication: MULTIPLE SCLEROSIS
     Route: 058
  3. PROPRANOLOL [Concomitant]
     Indication: HEART RATE INCREASED

REACTIONS (6)
  - PALPITATIONS [None]
  - CHEST PAIN [None]
  - INJECTION SITE HAEMATOMA [None]
  - INFLUENZA LIKE ILLNESS [None]
  - CHEST DISCOMFORT [None]
  - INJECTION SITE ERYTHEMA [None]
